FAERS Safety Report 16550905 (Version 1)
Quarter: 2019Q3

REPORT INFORMATION
  Report Type: Spontaneous
  Country: GB (occurrence: GB)
  Receive Date: 20190710
  Receipt Date: 20190710
  Transmission Date: 20191004
  Serious: Yes (Other)
  Sender: FDA-Public Use
  Company Number: GB-TEVA-2019-GB-1074183

PATIENT
  Age: 54 Year
  Sex: Female
  Weight: 44 kg

DRUGS (18)
  1. THIAMINE. [Concomitant]
     Active Substance: THIAMINE
     Dosage: 2 DOSAGE FORMS DAILY;
     Dates: start: 20190130
  2. FOLIC ACID. [Concomitant]
     Active Substance: FOLIC ACID
     Dosage: 1 DOSAGE FORMS DAILY;
     Dates: start: 20190130
  3. KETOCONAZOLE. [Concomitant]
     Active Substance: KETOCONAZOLE
     Dosage: APPLY TO THE AFFECTED AREA(S) ONCE OR TWICE A D...
     Route: 061
     Dates: start: 20190130
  4. CARBAMAZEPINE. [Suspect]
     Active Substance: CARBAMAZEPINE
     Dates: start: 20190604
  5. ZOPICLONE [Concomitant]
     Active Substance: ZOPICLONE
     Dosage: 1 DOSAGE FORMS DAILY; AT NIGHT .
     Dates: start: 20190130
  6. MOMETASONE [Concomitant]
     Active Substance: MOMETASONE
     Dosage: 1 DOSAGE FORMS DAILY;
     Dates: start: 20190130
  7. FLUTICASONE PROPIONATE. [Concomitant]
     Active Substance: FLUTICASONE PROPIONATE
     Dosage: 8 DOSAGE FORMS DAILY; 2 PUFFS IN EACH NOSTRIL
     Route: 045
     Dates: start: 20190130
  8. VENTOLIN [Concomitant]
     Active Substance: ALBUTEROL SULFATE
     Dosage: AS DIRECTED
     Dates: start: 20190130
  9. SYMBICORT [Concomitant]
     Active Substance: BUDESONIDE\FORMOTEROL FUMARATE DIHYDRATE
     Dosage: 6 DOSAGE FORMS DAILY; 3 PUFFS MORNING AND 3 PUFFS NIGHT
     Dates: start: 20190130
  10. SILVER SULFADIAZENE [Concomitant]
     Active Substance: SILVER SULFADIAZINE
     Dosage: USE AS DIRECTED
     Dates: start: 20190306
  11. TAMOXIFEN [Concomitant]
     Active Substance: TAMOXIFEN
     Dosage: .5 DOSAGE FORMS DAILY; AS DIRECTED
     Dates: start: 20190326, end: 20190423
  12. DIPROBASE [Concomitant]
     Active Substance: CHLOROCRESOL
     Dosage: AS DIRECTED
     Dates: start: 20190130
  13. DERMOL [Concomitant]
     Active Substance: BENZALKONIUM CHLORIDE\CHLORHEXIDINE HYDROCHLORIDE\ISOPROPYL MYRISTATE\PARAFFIN
     Dosage: APPLY TO SKIN OR USE AS SOAP SUBSTITUTE FOR DRY...
     Dates: start: 20190326, end: 20190423
  14. CLINITAS EYE DROPS [Concomitant]
     Dosage: USE AS DIRECTED
     Route: 047
     Dates: start: 20190130
  15. LORATADINE. [Concomitant]
     Active Substance: LORATADINE
     Dosage: 1 DOSAGE FORMS DAILY;
     Dates: start: 20190130
  16. BACLOFEN. [Concomitant]
     Active Substance: BACLOFEN
     Dosage: .5 DOSAGE FORMS DAILY; AT NIGHT F...
     Dates: start: 20190130
  17. JEXT [Concomitant]
     Dosage: USE AS DIRECTED
     Dates: start: 20190130
  18. CALCIUM CARBONATE. [Concomitant]
     Active Substance: CALCIUM CARBONATE
     Dosage: 4 DOSAGE FORMS DAILY;
     Dates: start: 20190501

REACTIONS (1)
  - Abdominal distension [Recovered/Resolved]

NARRATIVE: CASE EVENT DATE: 20190604
